FAERS Safety Report 6751667-4 (Version None)
Quarter: 2010Q2

REPORT INFORMATION
  Report Type: 
  Country: None (occurrence: None)
  Receive Date: 20100602
  Receipt Date: 20100528
  Transmission Date: 20101027
  Serious: Yes (Hospitalization)
  Sender: FDA-Public Use
  Company Number: A0862076A

PATIENT
  Age: 59 Year
  Sex: Male

DRUGS (1)
  1. AVANDIA [Suspect]
     Indication: DIABETES MELLITUS
     Dates: start: 20010101, end: 20070101

REACTIONS (6)
  - CARDIAC DISORDER [None]
  - CEREBROVASCULAR ACCIDENT [None]
  - CHEST PAIN [None]
  - CORONARY ARTERY BYPASS [None]
  - OPTIC ISCHAEMIC NEUROPATHY [None]
  - VISUAL FIELD DEFECT [None]
